FAERS Safety Report 4764962-5 (Version None)
Quarter: 2005Q3

REPORT INFORMATION
  Report Type: 
  Country: None (occurrence: None)
  Receive Date: 20050909
  Receipt Date: 20050830
  Transmission Date: 20060218
  Serious: Yes (Life-Threatening)
  Sender: FDA-Public Use
  Company Number: NL-ROCHE-415763

PATIENT
  Age: 22 Year
  Sex: Female

DRUGS (3)
  1. LARIAM [Suspect]
     Indication: MALARIA PROPHYLAXIS
     Route: 048
     Dates: start: 19970725
  2. HEPATITIS VACCINATION [Concomitant]
  3. DPT [Concomitant]

REACTIONS (4)
  - DEPRESSION [None]
  - DISTURBANCE IN ATTENTION [None]
  - PANIC REACTION [None]
  - PSYCHOTIC DISORDER [None]
